FAERS Safety Report 14777745 (Version 2)
Quarter: 2018Q2

REPORT INFORMATION
  Report Type: Spontaneous
  Country: US (occurrence: US)
  Receive Date: 20180419
  Receipt Date: 20180425
  Transmission Date: 20180711
  Serious: Yes (Hospitalization)
  Sender: FDA-Public Use
  Company Number: US-FRESENIUS MEDICAL CARE RENAL THERAPIES GROUP-FMC-1804-000738

PATIENT
  Sex: Female
  Weight: 65 kg

DRUGS (16)
  1. LEVOTHYROXINE. [Concomitant]
     Active Substance: LEVOTHYROXINE
  2. RIFAXIMIN. [Concomitant]
     Active Substance: RIFAXIMIN
  3. CARVEDILOL. [Concomitant]
     Active Substance: CARVEDILOL
  4. CHOLECALCIFEROL [Concomitant]
     Active Substance: CHOLECALCIFEROL
  5. DELFLEX [Suspect]
     Active Substance: CALCIUM CHLORIDE\DEXTROSE\MAGNESIUM CHLORIDE\SODIUM CHLORIDE\SODIUM LACTATE
     Indication: END STAGE RENAL DISEASE
     Route: 033
  6. SEVELAMER [Concomitant]
     Active Substance: SEVELAMER
  7. COLESEVELAM [Concomitant]
     Active Substance: COLESEVELAM
  8. DULOXETINE. [Concomitant]
     Active Substance: DULOXETINE
  9. FENOFIBRATE. [Concomitant]
     Active Substance: FENOFIBRATE
  10. LAMOTRIGINE. [Concomitant]
     Active Substance: LAMOTRIGINE
  11. SODIUM BICARBONATE. [Concomitant]
     Active Substance: SODIUM BICARBONATE
  12. AMLODIPINE [Concomitant]
     Active Substance: AMLODIPINE BESYLATE
  13. GLIMEPIRIDE. [Concomitant]
     Active Substance: GLIMEPIRIDE
  14. INSULIN [Concomitant]
     Active Substance: INSULIN NOS
  15. PRAMIPEXOLE. [Concomitant]
     Active Substance: PRAMIPEXOLE
  16. LISINOPRIL. [Concomitant]
     Active Substance: LISINOPRIL

REACTIONS (2)
  - Peritonitis [Recovering/Resolving]
  - Urinary tract infection [Recovering/Resolving]
